FAERS Safety Report 19665982 (Version 1)
Quarter: 2021Q3

REPORT INFORMATION
  Report Type: Spontaneous
  Country: US (occurrence: US)
  Receive Date: 20210806
  Receipt Date: 20210806
  Transmission Date: 20211014
  Serious: No
  Sender: FDA-Public Use
  Company Number: US-ELI_LILLY_AND_COMPANY-US202108002383

PATIENT
  Sex: Female

DRUGS (5)
  1. TRULICITY [Suspect]
     Active Substance: DULAGLUTIDE
     Indication: DIABETES MELLITUS
     Dosage: 0.75 MG, WEEKLY (1/W)
     Route: 058
  2. JARDIANCE [Concomitant]
     Active Substance: EMPAGLIFLOZIN
     Indication: DIABETES MELLITUS
     Dosage: 25 MG, DAILY
  3. XARELTO [Concomitant]
     Active Substance: RIVAROXABAN
     Indication: COAGULOPATHY
     Dosage: 20 MG, DAILY
  4. LIVALO [Concomitant]
     Active Substance: PITAVASTATIN CALCIUM
     Indication: BLOOD CHOLESTEROL ABNORMAL
     Dosage: 2 MG, DAILY
  5. PLAVIX [Concomitant]
     Active Substance: CLOPIDOGREL BISULFATE
     Indication: COAGULOPATHY
     Dosage: 75 MG, DAILY

REACTIONS (3)
  - Memory impairment [Unknown]
  - Diabetes mellitus [Unknown]
  - Cataract [Unknown]
